FAERS Safety Report 6464510-8 (Version None)
Quarter: 2009Q4

REPORT INFORMATION
  Report Type: 
  Country: None (occurrence: None)
  Receive Date: 20091201
  Receipt Date: 20091126
  Transmission Date: 20100525
  Serious: Yes (Other)
  Sender: FDA-Public Use
  Company Number: PL-PFIZER INC-2009289650

PATIENT
  Sex: Female

DRUGS (1)
  1. DEPO-PROVERA [Suspect]
     Indication: CONTRACEPTION
     Dosage: 150 MG
     Dates: start: 20090526

REACTIONS (4)
  - ACNE [None]
  - MENORRHAGIA [None]
  - OVARIAN CYST [None]
  - WEIGHT INCREASED [None]
